FAERS Safety Report 9676420 (Version 1)
Quarter: 2013Q4

REPORT INFORMATION
  Report Type: Spontaneous
  Country: US (occurrence: US)
  Receive Date: 20131107
  Receipt Date: 20131107
  Transmission Date: 20140711
  Serious: No
  Sender: FDA-Public Use
  Company Number: US-B.I. PHARMACEUTICALS,INC./RIDGEFIELD-2013-BI-34607BP

PATIENT
  Sex: Female
  Weight: 54 kg

DRUGS (4)
  1. COMBIVENT [Suspect]
     Indication: BRONCHITIS
     Route: 055
     Dates: start: 2000, end: 201303
  2. COMBIVENT [Suspect]
     Indication: ASTHMA
  3. BENADRYL [Concomitant]
     Indication: HYPERSENSITIVITY
     Dosage: 50 MG
     Route: 048
     Dates: start: 1993
  4. LEVOTHYROXINE [Concomitant]
     Indication: HYPOTHYROIDISM
     Dosage: 100 MCG
     Route: 048
     Dates: start: 1993

REACTIONS (1)
  - Off label use [Recovered/Resolved]
